FAERS Safety Report 7498592-1 (Version None)
Quarter: 2011Q2

REPORT INFORMATION
  Report Type: 
  Country: None (occurrence: None)
  Receive Date: 20110524
  Receipt Date: 20110425
  Transmission Date: 20111010
  Serious: Yes (Other)
  Sender: FDA-Public Use
  Company Number: US-BAYER-201032667NA

PATIENT
  Age: 28 Year
  Sex: Female
  Weight: 98 kg

DRUGS (6)
  1. LABETALOL [Concomitant]
     Dosage: UNK
     Route: 048
     Dates: start: 20060101
  2. METFORMIN HCL [Concomitant]
     Dosage: UNK
     Route: 048
     Dates: start: 20060101, end: 20090101
  3. PAIN MEDICATION [Concomitant]
  4. LISINOPRIL [Concomitant]
     Dosage: UNK
     Route: 048
     Dates: start: 20060101
  5. ACCUTANE [Concomitant]
  6. YASMIN [Suspect]
     Indication: CONTRACEPTION
     Dosage: UNK UNK, UNK
     Route: 048
     Dates: start: 20050101, end: 20070101

REACTIONS (3)
  - CHOLELITHIASIS [None]
  - ORGAN FAILURE [None]
  - CHOLECYSTITIS CHRONIC [None]
